FAERS Safety Report 8499393-8 (Version None)
Quarter: 2012Q2

REPORT INFORMATION
  Report Type: 
  Country: None (occurrence: None)
  Receive Date: 20120620
  Receipt Date: 20120413
  Transmission Date: 20120825
  Serious: Yes (Other)
  Sender: FDA-Public Use
  Company Number: 2010026154

PATIENT
  Sex: Female
  Weight: 58.9676 kg

DRUGS (1)
  1. VIVAGLOBIN [Suspect]
     Dosage: (START: 36 ML WEEKLY IN 3 SITES IN ABOUT 2 HOURS SUBCUTANEOUS)
     Route: 058
     Dates: end: 20090801

REACTIONS (5)
  - ASTHENIA [None]
  - INFUSION SITE ERYTHEMA [None]
  - INFUSION SITE SWELLING [None]
  - INFUSION SITE PRURITUS [None]
  - DRUG INEFFECTIVE [None]
